FAERS Safety Report 11259018 (Version 1)
Quarter: 2015Q2

REPORT INFORMATION
  Report Type: Spontaneous
  Country: US (occurrence: None)
  Receive Date: 20150617
  Receipt Date: 20150617
  Transmission Date: 20150821
  Serious: No
  Sender: FDA-Public Use
  Company Number: 2015TASUS000676

PATIENT
  Age: 62 Year
  Sex: Female
  Weight: 58 kg

DRUGS (2)
  1. SERTRALINE HCL (SERTRALINE HYDROCHLORIDE) [Concomitant]
  2. HETLIOZ [Suspect]
     Active Substance: TASIMELTEON
     Indication: CIRCADIAN RHYTHM SLEEP DISORDER
     Dosage: 20 MG, QHS, ORAL
     Route: 048
     Dates: start: 20141229

REACTIONS (3)
  - Rhinorrhoea [None]
  - Cough [None]
  - Headache [None]

NARRATIVE: CASE EVENT DATE: 201412
